FAERS Safety Report 9304951 (Version 2)
Quarter: 2013Q3

REPORT INFORMATION
  Report Type: Spontaneous
  Country: BR (occurrence: BR)
  Receive Date: 20130523
  Receipt Date: 20130919
  Transmission Date: 20140515
  Serious: Yes (Other)
  Sender: FDA-Public Use
  Company Number: BR-JNJFOC-20130511980

PATIENT
  Age: 67 Year
  Sex: Female
  Weight: 80 kg

DRUGS (12)
  1. SIMPONI [Suspect]
     Indication: RHEUMATOID ARTHRITIS
     Route: 058
  2. SIMPONI [Suspect]
     Indication: RHEUMATOID ARTHRITIS
     Dosage: 3RD DOSE
     Route: 058
     Dates: start: 20130514
  3. SIMPONI [Suspect]
     Indication: RHEUMATOID ARTHRITIS
     Dosage: FIRST DOSE
     Route: 058
     Dates: start: 201303
  4. PRELONE [Concomitant]
     Indication: INFLAMMATION
     Route: 065
     Dates: start: 201303
  5. LOXONIN [Concomitant]
     Indication: INFLAMMATION
     Route: 065
  6. FLUOXETINE [Concomitant]
     Indication: DEPRESSION
     Route: 065
  7. ALGINAC [Concomitant]
     Indication: PAIN
     Route: 065
  8. ALGINAC [Concomitant]
     Indication: INFLAMMATION
     Route: 065
  9. LYRICA [Concomitant]
     Indication: PAIN
     Route: 065
  10. ISOSORBIDE [Concomitant]
     Indication: PAIN
     Route: 065
  11. RIVOTRIL [Concomitant]
     Route: 065
  12. ALENIA [Concomitant]
     Indication: PNEUMONIA
     Route: 065

REACTIONS (6)
  - Sepsis [Unknown]
  - Pneumonia [Not Recovered/Not Resolved]
  - Osteomyelitis [Unknown]
  - Kidney infection [Not Recovered/Not Resolved]
  - Injection site pain [Not Recovered/Not Resolved]
  - Injection site haematoma [Not Recovered/Not Resolved]
